FAERS Safety Report 15001918 (Version 1)
Quarter: 2018Q2

REPORT INFORMATION
  Report Type: Spontaneous
  Country: US (occurrence: US)
  Receive Date: 20180521
  Receipt Date: 20180521
  Transmission Date: 20180711
  Serious: No
  Sender: FDA-Public Use
  Company Number: None

PATIENT
  Sex: Female
  Weight: 90.72 kg

DRUGS (2)
  1. RASUVO [Suspect]
     Active Substance: METHOTREXATE SODIUM
     Indication: PSORIASIS
     Route: 058
     Dates: start: 20170426
  2. COSENTYX [Concomitant]
     Active Substance: SECUKINUMAB

REACTIONS (2)
  - Cystitis [None]
  - Diarrhoea [None]
